FAERS Safety Report 14051986 (Version 3)
Quarter: 2017Q4

REPORT INFORMATION
  Report Type: Spontaneous
  Country: US (occurrence: US)
  Receive Date: 20171006
  Receipt Date: 20171116
  Transmission Date: 20180321
  Serious: No
  Sender: FDA-Public Use
  Company Number: US-PFIZER INC-2017426524

PATIENT
  Age: 57 Year
  Sex: Female
  Weight: 57.6 kg

DRUGS (2)
  1. LYRICA [Suspect]
     Active Substance: PREGABALIN
     Indication: COUGH
     Dosage: 200 MG, TWICE A DAY
     Route: 048
     Dates: start: 20171001
  2. LYRICA [Suspect]
     Active Substance: PREGABALIN
     Indication: LARYNX IRRITATION
     Dosage: 100 MG, TWICE A DAY
     Route: 048
     Dates: start: 20170918, end: 20170918

REACTIONS (11)
  - Product use in unapproved indication [Not Recovered/Not Resolved]
  - Balance disorder [Unknown]
  - Mouth swelling [Unknown]
  - Vision blurred [Not Recovered/Not Resolved]
  - Gait disturbance [Recovered/Resolved]
  - Drug hypersensitivity [Recovered/Resolved]
  - Lip swelling [Unknown]
  - Discomfort [Not Recovered/Not Resolved]
  - Fatigue [Unknown]
  - Dizziness [Recovering/Resolving]
  - Oral disorder [Not Recovered/Not Resolved]

NARRATIVE: CASE EVENT DATE: 20170918
